FAERS Safety Report 12154154 (Version 1)
Quarter: 2016Q1

REPORT INFORMATION
  Report Type: Spontaneous
  Country: None (occurrence: None)
  Receive Date: 20160304
  Receipt Date: 20160304
  Transmission Date: 20160526
  Serious: Yes (Hospitalization)
  Sender: FDA-Public Use
  Company Number: None

PATIENT
  Age: 52 Year
  Sex: Female
  Weight: 100.25 kg

DRUGS (14)
  1. AMITRIPTOLENE [Concomitant]
  2. CIMZIA [Suspect]
     Active Substance: CERTOLIZUMAB PEGOL
     Indication: RHEUMATOID ARTHRITIS
     Dosage: ONE INJECTIO EVERY TWO WEEKS GIVEN INO/UNDER THE SKIN
  3. LOTRL [Concomitant]
  4. ANTIDEPRESSANT [Concomitant]
     Active Substance: UNSPECIFIED INGREDIENT
  5. HEARTBURN MEDS [Concomitant]
  6. LEFLUNOMIDE. [Concomitant]
     Active Substance: LEFLUNOMIDE
  7. DIURETIC [Concomitant]
     Active Substance: UNSPECIFIED INGREDIENT
  8. FISH OIL [Concomitant]
     Active Substance: FISH OIL
  9. LYRICA [Concomitant]
     Active Substance: PREGABALIN
  10. TRAMADOL. [Concomitant]
     Active Substance: TRAMADOL
  11. PREDNISONE. [Concomitant]
     Active Substance: PREDNISONE
  12. FLAXSEED [Concomitant]
     Active Substance: FLAX SEED
  13. XANAX [Concomitant]
     Active Substance: ALPRAZOLAM
  14. PROBIOTIC [Concomitant]
     Active Substance: PROBIOTICS NOS

REACTIONS (7)
  - Encephalitis [None]
  - Sepsis [None]
  - Urinary tract infection [None]
  - Vomiting [None]
  - Diarrhoea [None]
  - Pneumonia [None]
  - Pyrexia [None]

NARRATIVE: CASE EVENT DATE: 20151222
